FAERS Safety Report 20052957 (Version 1)
Quarter: 2021Q4

REPORT INFORMATION
  Report Type: Spontaneous
  Country: US (occurrence: None)
  Receive Date: 20211109
  Receipt Date: 20211109
  Transmission Date: 20220303
  Serious: Yes (Death)
  Sender: FDA-Public Use
  Company Number: None

PATIENT
  Age: 73 Year
  Sex: Male
  Weight: 74.5 kg

DRUGS (9)
  1. CASIRIVIMAB\IMDEVIMAB [Suspect]
     Active Substance: CASIRIVIMAB\IMDEVIMAB
     Indication: COVID-19
     Dosage: FREQUENCY : ONCE;?
     Route: 042
     Dates: start: 20211027, end: 20211027
  2. ascorbic acid chewable [Concomitant]
  3. aspirin EC 81mg [Concomitant]
  4. ATORVASTATIN [Concomitant]
  5. diphgenhydramine [Concomitant]
  6. glucosamone-chrondroitin [Concomitant]
  7. MVI with minerals [Concomitant]
  8. OXYCODONE [Concomitant]
     Dates: start: 20210113, end: 20210113
  9. HERBALS\TURMERIC [Concomitant]
     Active Substance: HERBALS\TURMERIC

REACTIONS (2)
  - Fall [None]
  - Respiratory arrest [None]

NARRATIVE: CASE EVENT DATE: 20211101
